FAERS Safety Report 5471203-2 (Version None)
Quarter: 2007Q3

REPORT INFORMATION
  Report Type: 
  Country: None (occurrence: None)
  Receive Date: 20070928
  Receipt Date: 20070725
  Transmission Date: 20080115
  Serious: No
  Sender: FDA-Public Use
  Company Number: A0664323A

PATIENT
  Age: 72 Year
  Sex: Female

DRUGS (2)
  1. FLOVENT [Suspect]
     Indication: ASTHMA
     Dosage: 2PUFF TWICE PER DAY
     Route: 055
     Dates: start: 20050101
  2. ALBUTEROL [Concomitant]

REACTIONS (1)
  - DYSPHONIA [None]
